FAERS Safety Report 4551789-2 (Version None)
Quarter: 2005Q1

REPORT INFORMATION
  Report Type: 
  Country: None (occurrence: None)
  Receive Date: 20050113
  Receipt Date: 20050111
  Transmission Date: 20050727
  Serious: Yes (Death, Congenital Anomaly, Other)
  Sender: FDA-Public Use
  Company Number: FR-GLAXOSMITHKLINE-B0363940B

PATIENT
  Sex: Female

DRUGS (6)
  1. CLAMOXYL [Suspect]
     Dates: start: 20040627, end: 20040711
  2. NORSET [Suspect]
  3. ERYTHROCINE [Suspect]
     Dosage: 3G PER DAY
     Dates: start: 20040627, end: 20040711
  4. LYSANXIA [Suspect]
  5. CLOPIXOL [Suspect]
  6. ANEXATE [Suspect]
     Dates: start: 20040627

REACTIONS (8)
  - ABORTION INDUCED [None]
  - CONGENITAL ANOMALY [None]
  - DIAPHRAGMATIC HERNIA [None]
  - DRUG EXPOSURE DURING PREGNANCY [None]
  - HEART DISEASE CONGENITAL [None]
  - HYGROMA COLLI [None]
  - PLACENTAL DISORDER [None]
  - RENAL CYST [None]
